FAERS Safety Report 6340953-8 (Version None)
Quarter: 2009Q3

REPORT INFORMATION
  Report Type: 
  Country: None (occurrence: None)
  Receive Date: 20090904
  Receipt Date: 20090820
  Transmission Date: 20100115
  Serious: Yes (Death)
  Sender: FDA-Public Use
  Company Number: ES-WYE-G03829309

PATIENT
  Sex: Male

DRUGS (1)
  1. TYGACIL [Suspect]
     Indication: PERITONITIS
     Dates: start: 20090101, end: 20090101

REACTIONS (1)
  - WOUND DEHISCENCE [None]
